FAERS Safety Report 8438703-4 (Version None)
Quarter: 2012Q2

REPORT INFORMATION
  Report Type: 
  Country: None (occurrence: None)
  Receive Date: 20120611
  Receipt Date: 20120611
  Transmission Date: 20120825
  Serious: Yes (Hospitalization)
  Sender: FDA-Public Use
  Company Number: None

PATIENT
  Sex: Female
  Weight: 70.91 kg

DRUGS (6)
  1. FEXOFENADINE [Concomitant]
  2. METFORMIN HCL [Concomitant]
  3. ISOSORBIDE [Concomitant]
  4. ERBITUX [Suspect]
     Dosage: 453 MG
  5. CLOPIDOGREL [Concomitant]
  6. MICARDIS [Concomitant]

REACTIONS (1)
  - BLOOD GLUCOSE DECREASED [None]
